FAERS Safety Report 7788039-X (Version None)
Quarter: 2011Q3

REPORT INFORMATION
  Report Type: 
  Country: None (occurrence: None)
  Receive Date: 20110927
  Receipt Date: 20110914
  Transmission Date: 20111222
  Serious: Yes (Other)
  Sender: FDA-Public Use
  Company Number: AUR-APL-2011-05113

PATIENT
  Age: 50 Year
  Sex: Female
  Weight: 55.8 kg

DRUGS (4)
  1. TERBINAFINE HCL [Suspect]
     Indication: ONYCHOMYCOSIS
     Dosage: ORAL
     Route: 048
     Dates: start: 20110101, end: 20110601
  2. CALCIUM CARBONATE [Concomitant]
  3. VITAMIN D [Concomitant]
  4. VITAMIN SUPPLEMENT (KAPSOVIT) [Concomitant]

REACTIONS (1)
  - BONE MARROW FAILURE [None]
